FAERS Safety Report 5672344-7 (Version None)
Quarter: 2008Q2

REPORT INFORMATION
  Report Type: 
  Country: None (occurrence: None)
  Receive Date: 20080219
  Receipt Date: 20071101
  Transmission Date: 20081010
  Serious: No
  Sender: FDA-Public Use
  Company Number: TPA2007A02270

PATIENT
  Sex: Female
  Weight: 68.0396 kg

DRUGS (1)
  1. ROZEREM [Suspect]
     Indication: INITIAL INSOMNIA
     Dosage: 8 MG, ONCE, PER ORAL
     Route: 048
     Dates: start: 20060501, end: 20060501

REACTIONS (2)
  - MUSCULAR WEAKNESS [None]
  - SENSORY DISTURBANCE [None]
